FAERS Safety Report 9648755 (Version 1)
Quarter: 2013Q4

REPORT INFORMATION
  Report Type: Report from Study
  Country: DE (occurrence: DE)
  Receive Date: 20131028
  Receipt Date: 20131028
  Transmission Date: 20140711
  Serious: Yes (Death)
  Sender: FDA-Public Use
  Company Number: DE-ROCHE-1294561

PATIENT
  Age: 71 Year
  Sex: Male
  Weight: 73.1 kg

DRUGS (1)
  1. BEVACIZUMAB [Suspect]
     Indication: COLORECTAL CANCER METASTATIC
     Route: 065

REACTIONS (4)
  - Ileus [Fatal]
  - Intestinal perforation [Fatal]
  - Sepsis [Fatal]
  - Multi-organ failure [Fatal]
